FAERS Safety Report 15901456 (Version 1)
Quarter: 2019Q1

REPORT INFORMATION
  Report Type: Spontaneous
  Country: US (occurrence: US)
  Receive Date: 20190201
  Receipt Date: 20190201
  Transmission Date: 20190417
  Serious: No
  Sender: FDA-Public Use
  Company Number: US-009507513-1901USA007540

PATIENT
  Age: 26 Year
  Sex: Female
  Weight: 71.38 kg

DRUGS (1)
  1. NEXPLANON [Suspect]
     Active Substance: ETONOGESTREL
     Indication: CONTRACEPTION
     Dosage: 1 IMPLANT (68 MILLIGRAM), 3 YEARS
     Route: 059
     Dates: start: 20181216

REACTIONS (7)
  - Implant site pain [Not Recovered/Not Resolved]
  - Implant site bruising [Not Recovered/Not Resolved]
  - Abdominal pain upper [Not Recovered/Not Resolved]
  - Device kink [Not Recovered/Not Resolved]
  - Nausea [Not Recovered/Not Resolved]
  - Device breakage [Not Recovered/Not Resolved]
  - Weight increased [Not Recovered/Not Resolved]

NARRATIVE: CASE EVENT DATE: 201812
